FAERS Safety Report 18549366 (Version 1)
Quarter: 2020Q4

REPORT INFORMATION
  Report Type: Other
  Country: SA (occurrence: SA)
  Receive Date: 20201126
  Receipt Date: 20201126
  Transmission Date: 20210114
  Serious: Yes (Other)
  Sender: FDA-Public Use
  Company Number: SA-ROCHE-2716663

PATIENT

DRUGS (1)
  1. TOCILIZUMAB. [Suspect]
     Active Substance: TOCILIZUMAB
     Indication: COVID-19 PNEUMONIA
     Dosage: 2 DOSE WAS GIVEN 12 H APART. A THIRD INFUSION, GIVEN 24 H APART FROM THE SECOND.
     Route: 042

REACTIONS (8)
  - Sepsis [Unknown]
  - Urinary tract infection [Unknown]
  - Nosocomial infection [Unknown]
  - Off label use [Unknown]
  - Staphylococcal infection [Unknown]
  - Intentional product use issue [Unknown]
  - Acinetobacter infection [Unknown]
  - Enterococcal infection [Unknown]
